FAERS Safety Report 9787985 (Version 1)
Quarter: 2013Q4

REPORT INFORMATION
  Report Type: Spontaneous
  Country: US (occurrence: None)
  Receive Date: 20131227
  Receipt Date: 20131227
  Transmission Date: 20140711
  Serious: No
  Sender: FDA-Public Use
  Company Number: None

PATIENT
  Age: 45 Year
  Sex: Female
  Weight: 72.58 kg

DRUGS (1)
  1. RIZATRIPTAN BENZOATE TABLET 10 MG GLENMARK GENERICS LTD [Suspect]
     Indication: MIGRAINE
     Route: 048
     Dates: start: 20131030, end: 20131129

REACTIONS (3)
  - Product substitution issue [None]
  - Drug ineffective [None]
  - Migraine [None]
